FAERS Safety Report 16987024 (Version 1)
Quarter: 2019Q4

REPORT INFORMATION
  Report Type: Spontaneous
  Country: FR (occurrence: FR)
  Receive Date: 20191102
  Receipt Date: 20191102
  Transmission Date: 20200122
  Serious: Yes (Hospitalization)
  Sender: FDA-Public Use
  Company Number: FR-TEVA-2019-FR-1130285

PATIENT
  Age: 71 Year
  Sex: Male
  Weight: 85 kg

DRUGS (8)
  1. FLUOROURACILE [Concomitant]
     Active Substance: FLUOROURACIL
     Indication: ADENOCARCINOMA GASTRIC
     Dosage: FOLFOX PROTOCOL EVERY 15 DAYS: J1 BOLUS 400 MG / M? THEN INFUSION 1200 MG / M? J2 1200 MG / M?
     Route: 042
     Dates: start: 20180927
  2. PARACETAMOL [Concomitant]
     Active Substance: ACETAMINOPHEN
     Route: 048
  3. ZOPHREN [Concomitant]
     Active Substance: ONDANSETRON
     Dosage: IN PREMEDICATION BEFORE CHEMOTHERAPY
     Route: 042
     Dates: start: 20180927
  4. BICARBONATE DE SODIUM [Concomitant]
     Active Substance: SODIUM BICARBONATE
     Route: 002
  5. PANTOPRAZOLE [Concomitant]
     Active Substance: PANTOPRAZOLE
     Route: 048
  6. OXALIPLATINE [Suspect]
     Active Substance: OXALIPLATIN
     Indication: ADENOCARCINOMA GASTRIC
     Dosage: 85 MG / M? DECREASED TO 50% ACCORDING TO FOLFOX PROTOCOL EVERY 15 DAYS
     Route: 041
     Dates: start: 20180927, end: 20190916
  7. SOLU-MEDROL [Concomitant]
     Active Substance: METHYLPREDNISOLONE SODIUM SUCCINATE
     Dosage: IN PREMEDICATION BEFORE CHEMOTHERAPY
     Route: 042
     Dates: start: 20180927
  8. LEVOFOLINATE CALCIQUE [Concomitant]
     Active Substance: LEVOLEUCOVORIN CALCIUM
     Indication: ADENOCARCINOMA GASTRIC
     Dosage: 200 MG / M? AT DAY 1 OF CURES
     Route: 042
     Dates: start: 20180927

REACTIONS (3)
  - Coombs positive haemolytic anaemia [Recovered/Resolved]
  - Thrombocytopenia [Recovered/Resolved]
  - Hypersensitivity [Recovered/Resolved]

NARRATIVE: CASE EVENT DATE: 20190723
